FAERS Safety Report 8586080-0 (Version None)
Quarter: 2012Q3

REPORT INFORMATION
  Report Type: 
  Country: None (occurrence: None)
  Receive Date: 20120810
  Receipt Date: 20120802
  Transmission Date: 20120928
  Serious: Yes (Hospitalization)
  Sender: FDA-Public Use
  Company Number: US-ELI_LILLY_AND_COMPANY-US201203006328

PATIENT
  Sex: Female

DRUGS (10)
  1. FORTEO [Suspect]
     Dosage: 20 UG, QD
     Dates: end: 20120721
  2. CALCIUM [Concomitant]
     Dosage: UNK
  3. FORTEO [Suspect]
     Indication: OSTEOPOROSIS
     Dosage: 20 UG, QD
     Dates: start: 20120111
  4. FORTEO [Suspect]
     Dosage: 20 UG, QD
  5. WARFARIN SODIUM [Concomitant]
     Dosage: UNK
  6. MULTI-VITAMIN [Concomitant]
     Dosage: UNK
  7. LISINOPRIL [Concomitant]
     Dosage: 5 MG, QD
  8. ATENOLOL [Concomitant]
     Dosage: 12.5 MG, BID
  9. CARDIZEM [Concomitant]
  10. CALCITRIOL [Concomitant]
     Dosage: UNK

REACTIONS (8)
  - JOINT CREPITATION [None]
  - ABDOMINAL DISTENSION [None]
  - ATRIAL FIBRILLATION [None]
  - ASTHENIA [None]
  - ERUCTATION [None]
  - ABDOMINAL DISCOMFORT [None]
  - PAIN [None]
  - OEDEMA PERIPHERAL [None]
